FAERS Safety Report 20578763 (Version 1)
Quarter: 2022Q1

REPORT INFORMATION
  Report Type: Spontaneous
  Country: US (occurrence: None)
  Receive Date: 20220310
  Receipt Date: 20220310
  Transmission Date: 20220423
  Serious: Yes (Hospitalization)
  Sender: FDA-Public Use
  Company Number: None

PATIENT
  Age: 70 Year
  Sex: Male
  Weight: 63 kg

DRUGS (1)
  1. ZOLPIDEM TARTRATE [Suspect]
     Active Substance: ZOLPIDEM TARTRATE
     Indication: Insomnia
     Dosage: FREQUENCY : AT BEDTIME?
     Route: 048
     Dates: start: 20201109, end: 20201229

REACTIONS (9)
  - Fall [None]
  - Hip fracture [None]
  - Encephalopathy [None]
  - Wrong schedule [None]
  - Extra dose administered [None]
  - Confusional state [None]
  - Squamous cell carcinoma of lung [None]
  - Delirium [None]
  - Pulmonary haemorrhage [None]

NARRATIVE: CASE EVENT DATE: 20201229
